FAERS Safety Report 7490460-4 (Version None)
Quarter: 2011Q2

REPORT INFORMATION
  Report Type: 
  Country: None (occurrence: None)
  Receive Date: 20110519
  Receipt Date: 20110411
  Transmission Date: 20111010
  Serious: Yes (Other)
  Sender: FDA-Public Use
  Company Number: US-BAYER-201021605NA

PATIENT
  Age: 24 Year
  Sex: Female
  Weight: 72.562 kg

DRUGS (7)
  1. VICODIN [Concomitant]
  2. PROTONIX [Concomitant]
  3. YASMIN [Suspect]
     Indication: PRODUCT USED FOR UNKNOWN INDICATION
     Route: 048
     Dates: start: 20040101, end: 20080101
  4. TRI-SPRINTEC [Concomitant]
  5. NEXIUM [Concomitant]
  6. YAZ [Suspect]
     Indication: PRODUCT USED FOR UNKNOWN INDICATION
     Route: 048
     Dates: start: 20040101, end: 20080101
  7. BENTYL [Concomitant]

REACTIONS (8)
  - PAIN [None]
  - CHOLECYSTITIS CHRONIC [None]
  - CHOLECYSTECTOMY [None]
  - ABDOMINAL PAIN [None]
  - UNEVALUABLE EVENT [None]
  - CEREBROVASCULAR ACCIDENT [None]
  - CHEST PAIN [None]
  - CHOLELITHIASIS [None]
